FAERS Safety Report 25699788 (Version 1)
Quarter: 2025Q3

REPORT INFORMATION
  Report Type: Other
  Country: US (occurrence: US)
  Receive Date: 20250819
  Receipt Date: 20250819
  Transmission Date: 20251020
  Serious: Yes (Life-Threatening, Hospitalization, Other)
  Sender: APTAPHARMA INC.
  Company Number: US-AptaPharma Inc.-2182783

PATIENT
  Age: 40 Year
  Sex: Male

DRUGS (3)
  1. FLUOXETINE HYDROCHLORIDE [Suspect]
     Active Substance: FLUOXETINE HYDROCHLORIDE
     Indication: Product used for unknown indication
  2. METOPROLOL [Suspect]
     Active Substance: METOPROLOL
  3. DILTIAZEM [Suspect]
     Active Substance: DILTIAZEM

REACTIONS (3)
  - Cardiogenic shock [Recovered/Resolved]
  - Overdose [Unknown]
  - Bradycardia [Recovered/Resolved]
